FAERS Safety Report 21738255 (Version 1)
Quarter: 2022Q4

REPORT INFORMATION
  Report Type: Spontaneous
  Country: US (occurrence: US)
  Receive Date: 20221216
  Receipt Date: 20221216
  Transmission Date: 20230113
  Serious: No
  Sender: FDA-Public Use
  Company Number: US-HORIZON THERAPEUTICS-HZN-2022-009476

PATIENT

DRUGS (2)
  1. UPLIZNA [Suspect]
     Active Substance: INEBILIZUMAB-CDON
     Indication: Neuromyelitis optica spectrum disorder
     Dosage: 1 ST INFUSION, 300 MG
     Route: 042
  2. UPLIZNA [Suspect]
     Active Substance: INEBILIZUMAB-CDON
     Dosage: SECOND DOSE ON DAY 15, 300 MG
     Route: 042

REACTIONS (4)
  - Fatigue [Unknown]
  - Pain [Unknown]
  - Influenza like illness [Unknown]
  - Headache [Unknown]
